FAERS Safety Report 25895286 (Version 3)
Quarter: 2025Q4

REPORT INFORMATION
  Report Type: Spontaneous
  Country: US (occurrence: US)
  Receive Date: 20251008
  Receipt Date: 20251202
  Transmission Date: 20260118
  Serious: No
  Sender: ABBVIE
  Company Number: US-ABBVIE-6486264

PATIENT
  Sex: Female

DRUGS (2)
  1. LUMIGAN [Suspect]
     Active Substance: BIMATOPROST
     Indication: Product used for unknown indication
     Dosage: 0.01%
     Route: 047
  2. LUMIGAN [Suspect]
     Active Substance: BIMATOPROST
     Dosage: DOSE FORM: SUSPENSION/DROPS,?LUMIGAN 0.01% 7.5 ML MULTIDOSE BOTTLE
     Route: 047

REACTIONS (3)
  - Sinus congestion [Unknown]
  - Product leakage [Not Recovered/Not Resolved]
  - Dyspnoea [Unknown]
